FAERS Safety Report 11417545 (Version 5)
Quarter: 2015Q4

REPORT INFORMATION
  Report Type: Report from Study
  Country: US (occurrence: US)
  Receive Date: 20150825
  Receipt Date: 20151029
  Transmission Date: 20160304
  Serious: Yes (Hospitalization)
  Sender: FDA-Public Use
  Company Number: US-ACTELION-A-NJ2015-122866

PATIENT
  Age: 80 Year
  Sex: Female

DRUGS (2)
  1. WARFARIN [Concomitant]
     Active Substance: WARFARIN
  2. MACITENTAN [Suspect]
     Active Substance: MACITENTAN
     Indication: PULMONARY HYPERTENSION
     Dosage: 10 MG, QD
     Route: 048
     Dates: start: 20141229

REACTIONS (4)
  - Pulmonary embolism [Recovered/Resolved]
  - Endarterectomy [Recovered/Resolved]
  - Heart valve incompetence [Recovered/Resolved]
  - Mitral valve repair [Recovered/Resolved]

NARRATIVE: CASE EVENT DATE: 20150805
